FAERS Safety Report 8362945-X (Version None)
Quarter: 2012Q2

REPORT INFORMATION
  Report Type: 
  Country: None (occurrence: None)
  Receive Date: 20120514
  Receipt Date: 20120514
  Transmission Date: 20120825
  Serious: Yes (Disabling, Other)
  Sender: FDA-Public Use
  Company Number: None

PATIENT
  Age: 68 Year
  Sex: Female
  Weight: 77.1115 kg

DRUGS (1)
  1. TAXOL [Suspect]
     Indication: BREAST CANCER
     Dosage: WEEKLY INTRA-ATRIAL
     Route: 013
     Dates: start: 20110501, end: 20110815

REACTIONS (4)
  - ONYCHOMADESIS [None]
  - PURULENCE [None]
  - NEUROPATHY PERIPHERAL [None]
  - INFECTION [None]
